FAERS Safety Report 5206189-9 (Version None)
Quarter: 2006Q4

REPORT INFORMATION
  Report Type: 
  Country: None (occurrence: None)
  Receive Date: 20061026
  Receipt Date: 20060921
  Transmission Date: 20070319
  Serious: No
  Sender: FDA-Public Use
  Company Number: 2006115085

PATIENT
  Age: 54 Year
  Sex: Female
  Weight: 70.3075 kg

DRUGS (12)
  1. LYRICA [Suspect]
     Indication: NEURALGIA
     Dosage: 50 MG (50 MG, 1 IN 1 D)
     Dates: start: 20060901, end: 20060901
  2. AMBIEN [Suspect]
  3. SONATA [Suspect]
     Dates: start: 20060901, end: 20060901
  4. FLEXERIL [Suspect]
     Dates: end: 20060901
  5. BOTOX [Suspect]
     Indication: MIGRAINE
  6. TRAZODONE HCL [Concomitant]
  7. CYCLOSPORINE [Concomitant]
  8. LEVOTHYROXINE SODIUM [Concomitant]
  9. MIRALAX [Concomitant]
  10. MONTELUKAST (MONTELUKAST) [Concomitant]
  11. PROTONIX [Concomitant]
  12. VERELAN (VERAPAMIL HYDROCHLORIDE) [Concomitant]

REACTIONS (11)
  - CHROMATURIA [None]
  - DRUG INTERACTION [None]
  - FEELING ABNORMAL [None]
  - HALLUCINATION, VISUAL [None]
  - HYPOTONIA [None]
  - INCORRECT DOSE ADMINISTERED [None]
  - MUSCULOSKELETAL DISCOMFORT [None]
  - NIGHTMARE [None]
  - POOR QUALITY SLEEP [None]
  - SLEEP DISORDER [None]
  - URINARY TRACT INFECTION [None]
